FAERS Safety Report 11643634 (Version 1)
Quarter: 2015Q4

REPORT INFORMATION
  Report Type: Spontaneous
  Country: US (occurrence: None)
  Receive Date: 20151019
  Receipt Date: 20151019
  Transmission Date: 20160304
  Serious: Yes (Other)
  Sender: FDA-Public Use
  Company Number: None

PATIENT
  Sex: Female

DRUGS (1)
  1. LOVENOX [Suspect]
     Active Substance: ENOXAPARIN SODIUM
     Dates: start: 20150905

REACTIONS (3)
  - Injury associated with device [None]
  - Wrong technique in product usage process [None]
  - Device difficult to use [None]

NARRATIVE: CASE EVENT DATE: 20150905
